FAERS Safety Report 9870603 (Version 2)
Quarter: 2014Q1

REPORT INFORMATION
  Report Type: Spontaneous
  Country: US (occurrence: US)
  Receive Date: 20140205
  Receipt Date: 20140220
  Transmission Date: 20141002
  Serious: Yes (Hospitalization)
  Sender: FDA-Public Use
  Company Number: US-MERCK-1402USA000917

PATIENT
  Sex: Female

DRUGS (7)
  1. SINGULAIR [Suspect]
     Indication: CHRONIC OBSTRUCTIVE PULMONARY DISEASE
     Dosage: 10 MG, ONE TABLET EVERY OTHER DAY
     Route: 048
     Dates: start: 2009
  2. MONTELUKAST SODIUM [Suspect]
     Dosage: UNK, EVERY OTHER DAY
     Route: 048
  3. SPIRIVA [Suspect]
     Dosage: UNK
  4. ACTONEL [Suspect]
     Dosage: UNK
  5. PRILOSEC [Concomitant]
     Dosage: UNK
     Route: 048
  6. PROVENTIL [Concomitant]
     Dosage: UNK
     Route: 055
  7. ADVAIR [Concomitant]
     Dosage: UNK

REACTIONS (9)
  - Dyspnoea [Unknown]
  - Chest pain [Unknown]
  - Rhinorrhoea [Not Recovered/Not Resolved]
  - Sneezing [Not Recovered/Not Resolved]
  - Chest discomfort [Not Recovered/Not Resolved]
  - Rash [Not Recovered/Not Resolved]
  - Rash [Not Recovered/Not Resolved]
  - Urticaria [Not Recovered/Not Resolved]
  - Abdominal pain upper [Not Recovered/Not Resolved]
